FAERS Safety Report 8923447 (Version 2)
Quarter: 2012Q4

REPORT INFORMATION
  Report Type: 
  Country: AU (occurrence: AU)
  Receive Date: 20121124
  Receipt Date: 20121210
  Transmission Date: 20130627
  Serious: Yes (Other)
  Sender: FDA-Public Use
  Company Number: AU-009507513-1211AUS009706

PATIENT
  Age: 51 Year
  Sex: Male

DRUGS (3)
  1. VICTRELIS 200 MG [Suspect]
     Indication: HEPATITIS C
     Dosage: 800 mg, TDS
     Route: 048
     Dates: start: 20120414, end: 20121120
  2. PEGASYS [Suspect]
     Indication: HEPATITIS C
     Dosage: 180 mcg/week
     Route: 058
     Dates: start: 20120317, end: 20121120
  3. RIBAVIRIN [Suspect]
     Indication: HEPATITIS C
     Dosage: 800 mg/day
     Route: 048
     Dates: start: 20120317, end: 20121120

REACTIONS (1)
  - Hepatocellular carcinoma [Unknown]
